FAERS Safety Report 10235385 (Version 1)
Quarter: 2014Q2

REPORT INFORMATION
  Report Type: Spontaneous
  Country: US (occurrence: US)
  Receive Date: 20140613
  Receipt Date: 20140613
  Transmission Date: 20141212
  Serious: No
  Sender: FDA-Public Use
  Company Number: US-PFIZER INC-2014162942

PATIENT
  Age: 57 Year
  Sex: Female
  Weight: 87.5 kg

DRUGS (4)
  1. PRISTIQ [Suspect]
     Indication: DEPRESSION
     Dosage: 100 MG, DAILY
     Dates: start: 201312, end: 201403
  2. PRISTIQ [Suspect]
     Indication: GRIEF REACTION
  3. NOVOLOG [Concomitant]
     Indication: INSULIN RESISTANT DIABETES
     Dosage: UNK, AS NEEDED IN THE MORNING
  4. LANTUS [Concomitant]
     Indication: INSULIN RESISTANT DIABETES
     Dosage: 40-60 CC, DAILY IN THE EVENING

REACTIONS (1)
  - Weight increased [Unknown]
